FAERS Safety Report 12704590 (Version 1)
Quarter: 2016Q3

REPORT INFORMATION
  Report Type: Spontaneous
  Country: US (occurrence: US)
  Receive Date: 20160831
  Receipt Date: 20160831
  Transmission Date: 20161109
  Serious: No
  Sender: FDA-Public Use
  Company Number: US-PURDUE-USA-2016-0132076

PATIENT

DRUGS (1)
  1. OXYCODONE/ ACETAMINOPHEN TABLETS [Suspect]
     Active Substance: ACETAMINOPHEN\OXYCODONE HYDROCHLORIDE
     Indication: PAIN
     Dosage: 10/325 MG, UNK
     Route: 048

REACTIONS (10)
  - Decreased appetite [Unknown]
  - Drug effect decreased [Unknown]
  - Feeling jittery [Unknown]
  - Disturbance in attention [Unknown]
  - Hypophagia [Unknown]
  - Drug tolerance [Unknown]
  - Activities of daily living impaired [Unknown]
  - Drug ineffective [Unknown]
  - Intentional product use issue [Unknown]
  - Feeling abnormal [Unknown]
